FAERS Safety Report 9607658 (Version 3)
Quarter: 2013Q4

REPORT INFORMATION
  Report Type: Spontaneous
  Country: FR (occurrence: FR)
  Receive Date: 20131009
  Receipt Date: 20131017
  Transmission Date: 20140711
  Serious: Yes (Other)
  Sender: FDA-Public Use
  Company Number: FR-JNJFOC-JACFRA1999000401

PATIENT
  Age: 74 Year
  Sex: Female
  Weight: 81 kg

DRUGS (5)
  1. PEVARYL [Suspect]
     Indication: FUNGAL INFECTION
     Route: 003
     Dates: start: 19991001, end: 19991019
  2. MINISINTROM [Interacting]
     Indication: PRODUCT USED FOR UNKNOWN INDICATION
     Route: 048
     Dates: start: 19991023
  3. MINISINTROM [Interacting]
     Indication: PRODUCT USED FOR UNKNOWN INDICATION
     Route: 048
     Dates: start: 199404
  4. PRAXILENE [Concomitant]
     Route: 048
     Dates: start: 199404
  5. AVLOCARDYL [Concomitant]
     Route: 048
     Dates: start: 199404

REACTIONS (4)
  - Haematuria [Recovered/Resolved]
  - Ecchymosis [Recovered/Resolved]
  - International normalised ratio increased [Recovered/Resolved]
  - Drug interaction [Recovered/Resolved]
